FAERS Safety Report 7501749-4 (Version None)
Quarter: 2011Q2

REPORT INFORMATION
  Report Type: 
  Country: None (occurrence: None)
  Receive Date: 20110523
  Receipt Date: 20110523
  Transmission Date: 20111010
  Serious: Yes (Hospitalization)
  Sender: FDA-Public Use
  Company Number: None

PATIENT
  Age: 84 Year
  Sex: Male
  Weight: 78.4723 kg

DRUGS (10)
  1. FLOMAX [Concomitant]
  2. SENOKOT [Concomitant]
  3. MAGIC MOUTHWASH [Concomitant]
  4. TARCEVA [Suspect]
     Indication: NON-SMALL CELL LUNG CANCER
     Dosage: 150MG, DAILY,ORAL
     Route: 048
     Dates: start: 20110406
  5. PERCOCET [Concomitant]
  6. SINEMET [Concomitant]
  7. MS CONTIN [Concomitant]
  8. AVODART [Concomitant]
  9. PEPCID [Concomitant]
  10. COLACE [Concomitant]

REACTIONS (2)
  - PNEUMONIA [None]
  - DYSPNOEA EXERTIONAL [None]
